FAERS Safety Report 8903611 (Version 1)
Quarter: 2012Q4

REPORT INFORMATION
  Report Type: 
  Country: US (occurrence: US)
  Receive Date: 20121113
  Receipt Date: 20121113
  Transmission Date: 20130627
  Serious: No
  Sender: FDA-Public Use
  Company Number: US-PFIZER INC-2012283255

PATIENT

DRUGS (1)
  1. CHANTIX [Suspect]
     Dosage: UNK

REACTIONS (8)
  - Somnolence [Unknown]
  - Dizziness [Unknown]
  - Stomatitis [Unknown]
  - Sleep disorder [Unknown]
  - Abnormal dreams [Unknown]
  - Nausea [Unknown]
  - Visual impairment [Unknown]
  - Activities of daily living impaired [Unknown]
